FAERS Safety Report 20171202 (Version 1)
Quarter: 2021Q4

REPORT INFORMATION
  Report Type: Spontaneous
  Country: GR (occurrence: GR)
  Receive Date: 20211210
  Receipt Date: 20211210
  Transmission Date: 20220303
  Serious: No
  Sender: FDA-Public Use
  Company Number: GR-PFIZER INC-2021846551

PATIENT
  Age: 3 Year
  Sex: Female
  Weight: 12 kg

DRUGS (1)
  1. GENOTROPIN [Suspect]
     Active Substance: SOMATROPIN
     Indication: Growth hormone deficiency
     Dosage: 2.4MG/6 DAYS/5.3 MG PEN
     Route: 058
     Dates: start: 20210616

REACTIONS (5)
  - Device breakage [Unknown]
  - Device leakage [Unknown]
  - Incorrect dose administered by device [Unknown]
  - Wrong technique in device usage process [Unknown]
  - Gastroenteritis [Unknown]

NARRATIVE: CASE EVENT DATE: 20210703
